FAERS Safety Report 15987718 (Version 1)
Quarter: 2019Q1

REPORT INFORMATION
  Report Type: Spontaneous
  Country: US (occurrence: US)
  Receive Date: 20190220
  Receipt Date: 20190220
  Transmission Date: 20190418
  Serious: No
  Sender: FDA-Public Use
  Company Number: US-GLAXOSMITHKLINE-US2019GSK023856

PATIENT
  Sex: Female
  Weight: 56.16 kg

DRUGS (2)
  1. IMITREX [Suspect]
     Active Substance: SUMATRIPTAN SUCCINATE
     Indication: MIGRAINE
     Dosage: UNK
     Dates: start: 2004
  2. DARVON (BETAHISTINE MESILATE) [Concomitant]
     Indication: MIGRAINE
     Dosage: UNK
     Dates: start: 2004

REACTIONS (2)
  - Feeling jittery [Unknown]
  - Palpitations [Unknown]
